FAERS Safety Report 5977163-X (Version None)
Quarter: 2008Q4

REPORT INFORMATION
  Report Type: 
  Country: None (occurrence: None)
  Receive Date: 20081201
  Receipt Date: 20081201
  Transmission Date: 20090506
  Serious: Yes (Hospitalization)
  Sender: FDA-Public Use
  Company Number: None

PATIENT
  Age: 68 Year
  Sex: Male
  Weight: 72 kg

DRUGS (4)
  1. ETOPOSIDE [Suspect]
     Indication: NON-HODGKIN'S LYMPHOMA
     Route: 041
     Dates: start: 20080924, end: 20080927
  2. IFOSFAMIDE [Suspect]
     Indication: NON-HODGKIN'S LYMPHOMA
     Dates: start: 20080924, end: 20080927
  3. CARBOPLATIN [Suspect]
     Indication: NON-HODGKIN'S LYMPHOMA
     Dosage: 50 MG VIAL IV DRIP
     Route: 041
     Dates: start: 20080924, end: 20080927
  4. RITUXIMAB [Suspect]
     Indication: NON-HODGKIN'S LYMPHOMA
     Dosage: 10 MG/ML IV DRIP
     Route: 041
     Dates: start: 20070924, end: 20080927

REACTIONS (10)
  - AFFECT LABILITY [None]
  - CONFUSIONAL STATE [None]
  - CREATININE RENAL CLEARANCE ABNORMAL [None]
  - FLUID RETENTION [None]
  - GLOMERULAR FILTRATION RATE DECREASED [None]
  - NEUROTOXICITY [None]
  - NODAL RHYTHM [None]
  - OEDEMA PERIPHERAL [None]
  - PERIORBITAL OEDEMA [None]
  - SINUS BRADYCARDIA [None]
